FAERS Safety Report 21449744 (Version 1)
Quarter: 2022Q4

REPORT INFORMATION
  Report Type: Spontaneous
  Country: US (occurrence: US)
  Receive Date: 20221013
  Receipt Date: 20221013
  Transmission Date: 20230112
  Serious: Yes (Other)
  Sender: FDA-Public Use
  Company Number: US-TEVA-2022-US-2081816

PATIENT
  Age: 13 Year
  Sex: Female

DRUGS (6)
  1. CYCLOSPORINE [Suspect]
     Active Substance: CYCLOSPORINE
     Indication: Henoch-Schonlein purpura
     Route: 065
  2. PREDNISONE [Suspect]
     Active Substance: PREDNISONE
     Indication: Henoch-Schonlein purpura
     Route: 065
  3. ADALIMUMAB [Suspect]
     Active Substance: ADALIMUMAB
     Indication: Crohn^s disease
     Route: 065
  4. REMICADE [Suspect]
     Active Substance: INFLIXIMAB
     Indication: Crohn^s disease
     Route: 065
  5. DAPSONE [Suspect]
     Active Substance: DAPSONE
     Indication: Henoch-Schonlein purpura
     Route: 065
  6. TACROLIMUS [Suspect]
     Active Substance: TACROLIMUS
     Indication: Henoch-Schonlein purpura
     Route: 065

REACTIONS (6)
  - Henoch-Schonlein purpura [Unknown]
  - Arthritis [Unknown]
  - Proteinuria [Unknown]
  - Haematuria [Unknown]
  - Hypertension [Unknown]
  - Drug ineffective [Unknown]
